FAERS Safety Report 25736532 (Version 5)
Quarter: 2025Q4

REPORT INFORMATION
  Report Type: Report from Study
  Country: US (occurrence: US)
  Receive Date: 20250828
  Receipt Date: 20251231
  Transmission Date: 20260117
  Serious: Yes (Hospitalization)
  Sender: PFIZER
  Company Number: US-PFIZER INC-PV202400023107

PATIENT
  Age: 75 Year
  Sex: Female

DRUGS (1)
  1. IBRANCE [Suspect]
     Active Substance: PALBOCICLIB
     Dosage: 125 MG, FOR 21 DAYS OF 28 DAY CYCLE/21 DAYS EVERY 28 DAYS
     Route: 048

REACTIONS (4)
  - Fall [Unknown]
  - Vulvovaginal pruritus [Recovered/Resolved]
  - Sinusitis [Unknown]
  - Blood creatinine increased [Unknown]
